APPROVED DRUG PRODUCT: NADOLOL
Active Ingredient: NADOLOL
Strength: 20MG
Dosage Form/Route: TABLET;ORAL
Application: A211763 | Product #001 | TE Code: AB
Applicant: ALEMBIC PHARMACEUTICALS LTD
Approved: Jun 2, 2023 | RLD: No | RS: No | Type: RX